FAERS Safety Report 23057568 (Version 1)
Quarter: 2023Q4

REPORT INFORMATION
  Report Type: Spontaneous
  Country: CH (occurrence: CH)
  Receive Date: 20231012
  Receipt Date: 20231012
  Transmission Date: 20240110
  Serious: Yes (Life-Threatening, Hospitalization, Other)
  Sender: FDA-Public Use
  Company Number: None

PATIENT
  Age: 72 Year
  Sex: Female
  Weight: 48.9 kg

DRUGS (24)
  1. BACTRIM [Suspect]
     Active Substance: SULFAMETHOXAZOLE\TRIMETHOPRIM
     Indication: Product used for unknown indication
     Dosage: 15 MG/KG N/A DOSE EVERY 6 HOUR
     Route: 041
     Dates: start: 20230901, end: 20230905
  2. CANDESARTAN [Suspect]
     Active Substance: CANDESARTAN
     Indication: Product used for unknown indication
     Dosage: 8MG 0.5 -0-0-0
     Route: 048
     Dates: start: 20230909
  3. MORPHINE HYDROCHLORIDE [Suspect]
     Active Substance: MORPHINE HYDROCHLORIDE
     Indication: Product used for unknown indication
     Dosage: 10 MG (ON-DEMAND, SINGLE DOSE GIVEN ON 20230908, APPLICATION ROUTE UNKNOWN ; AS NECESSARY)
     Route: 065
     Dates: start: 20230908
  4. PANTOPRAZOLE [Suspect]
     Active Substance: PANTOPRAZOLE
     Indication: Product used for unknown indication
     Dosage: 0-0-1
     Route: 048
     Dates: start: 20230831, end: 20230913
  5. PIPERACILLIN SODIUM\TAZOBACTAM SODIUM [Suspect]
     Active Substance: PIPERACILLIN SODIUM\TAZOBACTAM SODIUM
     Indication: Atypical mycobacterial infection
     Dosage: SINGLE DOSE 4.5 G. TIME INTERVAL/UNITS UNKNOWN
     Route: 041
     Dates: start: 20230831, end: 20230905
  6. AMIKACIN [Concomitant]
     Active Substance: AMIKACIN
     Indication: Product used for unknown indication
     Dosage: 750 MG N/A DOSE EVERY 24 HOUR
     Route: 042
     Dates: start: 20230906
  7. ASPIRIN [Concomitant]
     Active Substance: ASPIRIN
     Indication: Product used for unknown indication
     Dosage: 100 MG (IN TOTAL)
     Route: 048
     Dates: start: 20230908, end: 20230908
  8. CALCIUM\CHOLECALCIFEROL [Concomitant]
     Active Substance: CALCIUM\CHOLECALCIFEROL
     Indication: Product used for unknown indication
     Dosage: 500 MG/1000IE 0-0-1
     Route: 048
     Dates: start: 20230831
  9. DAFALGAN [Concomitant]
     Active Substance: ACETAMINOPHEN
     Indication: Product used for unknown indication
     Dosage: SINGLE INTAKE OF ONE 500MG DOSE DOCUMENTED ON 20230907 ; AS NECESSARY
     Route: 048
     Dates: start: 20230831
  10. ISOSORBIDE DINITRATE [Concomitant]
     Active Substance: ISOSORBIDE DINITRATE
     Indication: Product used for unknown indication
     Dosage: 1.25 MG (SINGLE APPLICATION ON 20230908 ; AS NECESSARY)
     Route: 048
     Dates: start: 20230908, end: 20230911
  11. LAMPRENE [Concomitant]
     Active Substance: CLOFAZIMINE
     Indication: Atypical mycobacterial infection
     Dosage: 50MG 2-0-0
     Route: 048
     Dates: start: 20230906
  12. Makatussin [Concomitant]
     Indication: Product used for unknown indication
     Dosage: ON-DEMAND MEDICATION, DOSAGE UNKNOWN, SINGLE DOSE GIVEN ON 20230910 ; AS NECESSARY
     Route: 048
     Dates: start: 20230910
  13. METOPROLOL [Concomitant]
     Active Substance: METOPROLOL
     Indication: Product used for unknown indication
     Dosage: 25 MG N/A DOSE EVERY 24 HOUR
     Route: 048
     Dates: start: 20230908
  14. MYAMBUTOL [Concomitant]
     Active Substance: ETHAMBUTOL HYDROCHLORIDE
     Dosage: 400MG 2-0-0
     Route: 048
     Dates: start: 20230907
  15. MYAMBUTOL [Concomitant]
     Active Substance: ETHAMBUTOL HYDROCHLORIDE
     Indication: Atypical mycobacterial infection
     Dosage: ACCORDING TO DOCUMENTATION START DATE IN 2021, DOSAGE UNKNOWN
     Route: 048
     Dates: start: 20230129, end: 20230906
  16. NOVORAPID [Concomitant]
     Active Substance: INSULIN ASPART
     Indication: Product used for unknown indication
     Dosage: DOSAGE UNKNOWN
     Route: 065
     Dates: start: 20230906
  17. NUCALA [Concomitant]
     Active Substance: MEPOLIZUMAB
     Indication: Product used for unknown indication
     Dosage: 100 MG (IN TOTAL)
     Route: 058
     Dates: start: 20230906, end: 20230906
  18. POSACONAZOLE [Concomitant]
     Active Substance: POSACONAZOLE
     Indication: Product used for unknown indication
     Dosage: 300 MG N/A DOSE EVERY 24 HOUR
     Route: 048
     Dates: start: 20230906
  19. RIFAMPIN [Concomitant]
     Active Substance: RIFAMPIN
     Dosage: 600 MG N/A DOSE EVERY 24 HOUR
     Route: 048
     Dates: start: 20230906
  20. RIFAMPIN [Concomitant]
     Active Substance: RIFAMPIN
     Indication: Product used for unknown indication
     Dosage: ACCORDING TO DOCUMENTATION START DATE IN 2021, DOSAGE UNKNOWN
     Route: 048
     Dates: start: 20210129, end: 20230905
  21. PREDNISOLONE [Concomitant]
     Active Substance: PREDNISOLONE
     Indication: Product used for unknown indication
     Dosage: 5MG 0.5-0-0-0
     Route: 048
     Dates: start: 20230831
  22. SPORANOX [Concomitant]
     Active Substance: ITRACONAZOLE
     Indication: Bronchopulmonary aspergillosis
     Dosage: DOSAGE UNKNOWN
     Route: 048
     Dates: start: 20230902, end: 20230906
  23. ZITHROMAX [Concomitant]
     Active Substance: AZITHROMYCIN DIHYDRATE
     Indication: Atypical mycobacterial infection
     Dosage: 250 MG 2-0-0
     Route: 048
     Dates: start: 20230906
  24. ZITHROMAX [Concomitant]
     Active Substance: AZITHROMYCIN DIHYDRATE
     Dosage: DOSAGE UNKNOWN, DOCUMENTATION STATES THAT THERAPY WAS INITIATED IN 2021
     Route: 048
     Dates: start: 20230129, end: 20230905

REACTIONS (4)
  - Hyponatraemia [Recovering/Resolving]
  - Inappropriate antidiuretic hormone secretion [Recovering/Resolving]
  - Nausea [Recovering/Resolving]
  - Vomiting [Recovering/Resolving]

NARRATIVE: CASE EVENT DATE: 20230907
